FAERS Safety Report 18469554 (Version 3)
Quarter: 2020Q4

REPORT INFORMATION
  Report Type: Report from Study
  Country: IT (occurrence: IT)
  Receive Date: 20201105
  Receipt Date: 20201201
  Transmission Date: 20210114
  Serious: Yes (Other)
  Sender: FDA-Public Use
  Company Number: IT-PFIZER INC-2020426479

PATIENT
  Age: 61 Year
  Sex: Male
  Weight: 73 kg

DRUGS (15)
  1. CARBOPLATIN. [Suspect]
     Active Substance: CARBOPLATIN
     Dosage: 2ND CYCLE OF THERAPY CBDA-ALIMTA AT 80% OF THE DOSE
     Dates: start: 20200923, end: 20200923
  2. ALIMTA [Suspect]
     Active Substance: PEMETREXED DISODIUM
     Dosage: 2ND CYCLE OF THERAPY CBDA-ALIMTA AT 80% OF THE DOSE
     Dates: start: 20200923, end: 20200923
  3. PALEXIA [Concomitant]
     Active Substance: TAPENTADOL HYDROCHLORIDE
     Dosage: 25 MG
     Route: 048
  4. ALIMTA [Suspect]
     Active Substance: PEMETREXED DISODIUM
     Dosage: 3RD CYCLE OF CBDA-ALIMTA
     Dates: start: 20201014
  5. ZOFRAN [Concomitant]
     Active Substance: ONDANSETRON HYDROCHLORIDE
     Indication: PROPHYLAXIS OF NAUSEA AND VOMITING
     Dosage: 16 MG
     Route: 048
     Dates: start: 20200902, end: 20200905
  6. CARBOPLATIN. [Suspect]
     Active Substance: CARBOPLATIN
     Dosage: 3RD CYCLE OF CBDA-ALIMTA
     Dates: start: 20201014
  7. ACETAMINOPHEN AND CODEINE [Concomitant]
     Active Substance: ACETAMINOPHEN\CODEINE PHOSPHATE
     Dosage: 500 MG
     Route: 048
  8. DELTACORTENE [Concomitant]
     Active Substance: PREDNISONE
     Indication: PROPHYLAXIS OF NAUSEA AND VOMITING
     Dosage: 50 MG
     Route: 048
     Dates: start: 20200901, end: 20200901
  9. PANTORC [Concomitant]
     Active Substance: PANTOPRAZOLE SODIUM
     Dosage: 40 MG
     Route: 048
  10. ONDANSETRON HYDROCHLORIDE. [Concomitant]
     Active Substance: ONDANSETRON HYDROCHLORIDE
     Indication: PROPHYLAXIS OF NAUSEA AND VOMITING
     Dosage: 8 MG
     Route: 042
     Dates: start: 20200902, end: 20200902
  11. APREPITANT. [Concomitant]
     Active Substance: APREPITANT
     Indication: PROPHYLAXIS OF NAUSEA AND VOMITING
     Dates: start: 20200902, end: 20200902
  12. CARBOPLATIN. [Suspect]
     Active Substance: CARBOPLATIN
     Indication: LUNG ADENOCARCINOMA
     Dosage: 500 MG, CYCLIC 1ST CYCLE
     Route: 042
     Dates: start: 20200902, end: 20200902
  13. ALIMTA [Suspect]
     Active Substance: PEMETREXED DISODIUM
     Indication: LUNG ADENOCARCINOMA
     Dosage: 935 MG, CYCLIC
     Route: 042
     Dates: start: 20200902, end: 20200902
  14. CIPROFLOXACIN. [Suspect]
     Active Substance: CIPROFLOXACIN
     Indication: SKIN LESION
     Dosage: 750 MG, 2X/DAY
     Route: 048
     Dates: start: 20200904, end: 20200908
  15. DEXAMETHASONE. [Concomitant]
     Active Substance: DEXAMETHASONE
     Indication: PROPHYLAXIS OF NAUSEA AND VOMITING
     Dosage: 4 MG
     Route: 042
     Dates: start: 20200902, end: 20200902

REACTIONS (11)
  - Malaise [Recovered/Resolved]
  - Rash macular [Recovered/Resolved]
  - Rash macular [Recovered/Resolved]
  - Pruritus [Recovered/Resolved]
  - Pruritus [Recovered/Resolved]
  - Thrombocytopenia [Recovered/Resolved]
  - Malaise [Unknown]
  - Nausea [Recovered/Resolved]
  - Rash macular [Recovered/Resolved]
  - Pruritus [Recovered/Resolved]
  - Nausea [Unknown]

NARRATIVE: CASE EVENT DATE: 20200904
